FAERS Safety Report 7449431-6 (Version None)
Quarter: 2011Q2

REPORT INFORMATION
  Report Type: 
  Country: None (occurrence: None)
  Receive Date: 20110502
  Receipt Date: 20110422
  Transmission Date: 20111010
  Serious: No
  Sender: FDA-Public Use
  Company Number: US-BIOGENIDEC-2011BI015221

PATIENT
  Age: 51 Year
  Sex: Female

DRUGS (2)
  1. AVONEX [Suspect]
     Indication: MULTIPLE SCLEROSIS
     Route: 030
     Dates: start: 20110404
  2. HALDOL [Concomitant]
     Indication: BIPOLAR I DISORDER

REACTIONS (7)
  - INJECTION SITE PAIN [None]
  - INJECTION SITE ERYTHEMA [None]
  - LOSS OF CONSCIOUSNESS [None]
  - HEADACHE [None]
  - TINNITUS [None]
  - HALLUCINATION [None]
  - ABNORMAL DREAMS [None]
